FAERS Safety Report 6801470-1 (Version None)
Quarter: 2010Q2

REPORT INFORMATION
  Report Type: 
  Country: None (occurrence: None)
  Receive Date: 20100629
  Receipt Date: 20100623
  Transmission Date: 20101027
  Serious: Yes (Death)
  Sender: FDA-Public Use
  Company Number: EG-ROCHE-711330

PATIENT
  Sex: Female
  Weight: 122 kg

DRUGS (13)
  1. TOCILIZUMAB [Suspect]
     Indication: RHEUMATOID ARTHRITIS
     Dosage: FORM: VIALS.
     Route: 042
     Dates: start: 20100504
  2. METHOTREXATE [Suspect]
     Indication: RHEUMATOID ARTHRITIS
     Dosage: LAST DOSE PRIOR TO SAE: 18 JUNE 2010.
     Route: 030
     Dates: start: 20060101
  3. LANSOPRAZOLE [Concomitant]
     Dates: start: 20090101
  4. DICLOFENAC EPOLAMINE [Concomitant]
     Dates: start: 20090101
  5. TIZANIDINE [Concomitant]
     Dates: start: 20090101
  6. SPIRONOLACTONE [Concomitant]
     Dosage: DRUG NAME: SPIRONOLACTONE AND FUROSEMIDE
     Dates: start: 20070101
  7. FUROSEMIDE [Concomitant]
     Dosage: DRUG NAME: SPIRONOLACTONE + FUROSEMIDE
     Dates: start: 20070101
  8. ATORVASTATIN [Concomitant]
     Dates: start: 20090101
  9. MULTI-VITAMINS [Concomitant]
     Dosage: DRUG NAME: SUPRAVIT.
     Dates: start: 20100401
  10. SILIMARIN [Concomitant]
     Dates: start: 20100101
  11. ALLOPURINOL [Concomitant]
     Dates: start: 20100504
  12. LEFLUNOMIDE [Concomitant]
     Dates: start: 20070101, end: 20100101
  13. SULPHASALAZINE [Concomitant]
     Dates: start: 20090101, end: 20100101

REACTIONS (1)
  - SUDDEN DEATH [None]
